FAERS Safety Report 10143833 (Version 2)
Quarter: 2014Q2

REPORT INFORMATION
  Report Type: Spontaneous
  Country: GB (occurrence: None)
  Receive Date: 20140428
  Receipt Date: 20140623
  Transmission Date: 20141212
  Serious: Yes (Death)
  Sender: FDA-Public Use
  Company Number: AUR-APL-2014-04867

PATIENT
  Age: 50 Year
  Sex: Male
  Weight: 132 kg

DRUGS (10)
  1. AMOXICILLIN [Suspect]
     Indication: INFECTION
     Dosage: 2000 MG (50 MG, 4 IN 1 D), ORAL
     Route: 048
     Dates: start: 20140127, end: 20140202
  2. DIPHENHYDRAMINE (DIPHENHYDRAMINE) [Concomitant]
  3. FERROUS FUMARATE (FERROUS FUMARATE) [Concomitant]
  4. FORCEVAL (AMINO ACIDS NOS W/ELECTROLYTES NOS/FERROUS FU) [Concomitant]
  5. LACTULOSE (LACTULOSE) [Concomitant]
  6. OMEPRAZOLE (OMEPRAZOLE) [Concomitant]
  7. ORLISTAT (ORLISTAT) [Concomitant]
  8. SILDENAFIL (SILDENAFIL) [Concomitant]
  9. SPIRONOLACTONE (SPIRONOLACTONE) [Concomitant]
  10. THIAMINE (THIAMINE) [Concomitant]

REACTIONS (3)
  - Drug-induced liver injury [None]
  - General physical health deterioration [None]
  - Liver disorder [None]
